FAERS Safety Report 20526678 (Version 2)
Quarter: 2022Q1

REPORT INFORMATION
  Report Type: Spontaneous
  Country: US (occurrence: US)
  Receive Date: 20220228
  Receipt Date: 20220328
  Transmission Date: 20220424
  Serious: Yes (Other)
  Sender: FDA-Public Use
  Company Number: US-PFIZER INC-202200268465

PATIENT
  Age: 56 Year
  Sex: Female
  Weight: 83.8 kg

DRUGS (1)
  1. IBRANCE [Suspect]
     Active Substance: PALBOCICLIB
     Indication: Breast cancer metastatic
     Dosage: 75 MG, CYCLIC (75 MG. ONE TABLET DAILY BY MOUTH FOR 3 WEEKS AND THEN OFF FOR ONE WEEK)
     Dates: start: 20220213

REACTIONS (5)
  - Dizziness [Not Recovered/Not Resolved]
  - Blood pressure abnormal [Unknown]
  - Dyspnoea [Unknown]
  - Full blood count abnormal [Unknown]
  - Feeling abnormal [Unknown]

NARRATIVE: CASE EVENT DATE: 20220201
